FAERS Safety Report 8851313 (Version 1)
Quarter: 2012Q4

REPORT INFORMATION
  Report Type: 
  Country: CA (occurrence: CA)
  Receive Date: 20121020
  Receipt Date: 20121020
  Transmission Date: 20130627
  Serious: Yes (Hospitalization, Other)
  Sender: FDA-Public Use
  Company Number: PHHO2005CA08068

PATIENT
  Age: 76 Year
  Sex: Male

DRUGS (9)
  1. SANDOSTATIN LAR [Suspect]
     Indication: CARCINOID TUMOUR
     Dosage: 20 mg, every 4 weeks
     Dates: start: 20050422
  2. SANDOSTATIN LAR [Suspect]
     Dosage: 30 mg, every 4 weeks
  3. ALTACE [Concomitant]
  4. ATENOLOL [Concomitant]
  5. CALCIUM CARBONATE [Concomitant]
  6. PLAVIX [Concomitant]
  7. FERROUS GLUCONATE [Concomitant]
  8. HYDROCHLOROTHIAZIDE [Concomitant]
  9. ENTERIC ASPIRIN [Concomitant]

REACTIONS (11)
  - Hypertension [Recovering/Resolving]
  - Chest discomfort [Unknown]
  - Anxiety [Unknown]
  - Diarrhoea [Unknown]
  - Bradycardia [Unknown]
  - Influenza [Unknown]
  - Flushing [Unknown]
  - Flatulence [Unknown]
  - Asthenia [Unknown]
  - Decreased appetite [Unknown]
  - Fatigue [Unknown]
